FAERS Safety Report 23662858 (Version 2)
Quarter: 2024Q1

REPORT INFORMATION
  Report Type: Report from Study
  Country: US (occurrence: US)
  Receive Date: 20240322
  Receipt Date: 20240328
  Transmission Date: 20240409
  Serious: Yes (Hospitalization)
  Sender: FDA-Public Use
  Company Number: US-ALKERMES INC.-ALK-2024-000584

PATIENT
  Age: 61 Year
  Sex: Female

DRUGS (9)
  1. BUPRENORPHINE [Suspect]
     Active Substance: BUPRENORPHINE
     Indication: Drug use disorder
     Dosage: 380 MILLIGRAM, WEEK  0, 3,AND 6
     Route: 030
     Dates: start: 20240226
  2. INVESTIGATIONAL PRODUCT [Suspect]
     Active Substance: INVESTIGATIONAL PRODUCT
     Indication: Drug use disorder
     Dosage: 380 MILLIGRAM, WEEK  0, 3,AND 6
     Route: 030
     Dates: start: 20240226
  3. VIVITROL [Suspect]
     Active Substance: NALTREXONE
     Indication: Drug use disorder
     Dosage: 380 MILLIGRAM, WEEK  0, 3,AND 6
     Route: 030
     Dates: start: 20240226
  4. VIVITROL [Suspect]
     Active Substance: NALTREXONE
     Indication: Drug use disorder
     Dosage: 380 MILLIGRAM, WEEK  0, 3,AND 6
     Route: 030
     Dates: start: 20240226
  5. BUPRENORPHINE [Suspect]
     Active Substance: BUPRENORPHINE
     Dosage: 300 MILLIGRAM, WEEK 0,4
     Route: 058
     Dates: start: 20240226
  6. INVESTIGATIONAL PRODUCT [Suspect]
     Active Substance: INVESTIGATIONAL PRODUCT
     Dosage: 300 MILLIGRAM, WEEK 0,4
     Route: 058
     Dates: start: 20240226
  7. VIVITROL [Suspect]
     Active Substance: NALTREXONE
     Dosage: 300 MILLIGRAM, WEEK 0,4
     Route: 058
     Dates: start: 20240226
  8. VIVITROL [Suspect]
     Active Substance: NALTREXONE
     Dosage: 300 MILLIGRAM, WEEK 0,4
     Route: 058
     Dates: start: 20240226
  9. GABAPENTIN [Concomitant]
     Active Substance: GABAPENTIN
     Indication: Product used for unknown indication
     Route: 065

REACTIONS (1)
  - Chronic obstructive pulmonary disease [Not Recovered/Not Resolved]

NARRATIVE: CASE EVENT DATE: 20240303
